FAERS Safety Report 7704640 (Version 2)
Quarter: 2014Q1

REPORT INFORMATION
  Report Type: Spontaneous
  Country: US (occurrence: US)
  Receive Date: 20101213
  Receipt Date: 20140218
  Transmission Date: 20141002
  Serious: Yes (Hospitalization, Other)
  Sender: FDA-Public Use
  Company Number: US-ROCHE-724536

PATIENT
  Age: 20 Year
  Sex: Male
  Weight: 72.6 kg

DRUGS (1)
  1. ACCUTANE [Suspect]
     Indication: ACNE
     Route: 065
     Dates: start: 199001, end: 199006

REACTIONS (8)
  - Colitis ulcerative [Unknown]
  - Gastrointestinal injury [Unknown]
  - Depression [Unknown]
  - Proctitis [Unknown]
  - Crohn^s disease [Unknown]
  - Ileus [Unknown]
  - Abdominal abscess [Unknown]
  - Irritable bowel syndrome [Unknown]
